FAERS Safety Report 9160760 (Version 3)
Quarter: 2013Q2

REPORT INFORMATION
  Report Type: Spontaneous
  Country: JP (occurrence: JP)
  Receive Date: 20130313
  Receipt Date: 20130424
  Transmission Date: 20140414
  Serious: Yes (Other)
  Sender: FDA-Public Use
  Company Number: JP-B.I. PHARMACEUTICALS,INC./RIDGEFIELD-2013-BI-06675NB

PATIENT
  Age: 77 Year
  Sex: Male

DRUGS (6)
  1. PRAZAXA [Suspect]
     Indication: CEREBROVASCULAR ACCIDENT PROPHYLAXIS
     Dosage: 220 MG
     Route: 048
  2. ARTIST [Concomitant]
     Route: 065
  3. TAMBOCOR [Concomitant]
     Route: 065
  4. NORVASC OD [Concomitant]
     Route: 065
  5. TAKEPRON [Concomitant]
     Route: 065
  6. GASMOTIN [Concomitant]
     Route: 065

REACTIONS (1)
  - Cerebral infarction [Unknown]
